FAERS Safety Report 8096577-8 (Version None)
Quarter: 2012Q1

REPORT INFORMATION
  Report Type: 
  Country: None (occurrence: None)
  Receive Date: 20120129
  Receipt Date: 20111123
  Transmission Date: 20120608
  Serious: No
  Sender: FDA-Public Use
  Company Number: US-ABBOTT-11P-163-0863532-00

PATIENT
  Age: 28 Year
  Sex: Male

DRUGS (1)
  1. HUMIRA [Suspect]
     Indication: PSORIASIS
     Dates: start: 20110801, end: 20111023

REACTIONS (6)
  - ASTHENIA [None]
  - STRESS [None]
  - DECREASED APPETITE [None]
  - METABOLIC DISORDER [None]
  - DYSSOMNIA [None]
  - ADVERSE DRUG REACTION [None]
